FAERS Safety Report 4958053-8 (Version None)
Quarter: 2006Q1

REPORT INFORMATION
  Report Type: 
  Country: None (occurrence: None)
  Receive Date: 20060330
  Receipt Date: 20060322
  Transmission Date: 20060701
  Serious: Yes (Life-Threatening, Other)
  Sender: FDA-Public Use
  Company Number: AU-MERCK-0603AUS00183

PATIENT
  Age: 61 Year
  Sex: Female
  Weight: 76 kg

DRUGS (6)
  1. ZOCOR [Suspect]
     Route: 048
     Dates: start: 20050808
  2. CLOPIDOGREL BISULFATE [Concomitant]
     Route: 065
  3. ATENOLOL [Concomitant]
     Route: 065
  4. PERINDOPRIL ERBUMINE [Concomitant]
     Route: 065
  5. CALCIUM CITRATE [Concomitant]
     Route: 065
  6. DIGOXIN [Concomitant]
     Route: 065

REACTIONS (5)
  - DIALYSIS [None]
  - DIFFICULTY IN WALKING [None]
  - PAIN IN EXTREMITY [None]
  - RENAL FAILURE ACUTE [None]
  - RHABDOMYOLYSIS [None]
